FAERS Safety Report 17751891 (Version 1)
Quarter: 2020Q2

REPORT INFORMATION
  Report Type: Spontaneous
  Country: CL (occurrence: CL)
  Receive Date: 20200506
  Receipt Date: 20200506
  Transmission Date: 20200714
  Serious: Yes (Other)
  Sender: FDA-Public Use
  Company Number: CL-AMGEN-CHLSP2016174390

PATIENT
  Age: 37 Year
  Sex: Female

DRUGS (3)
  1. ENBREL [Suspect]
     Active Substance: ETANERCEPT
     Indication: PSORIATIC ARTHROPATHY
     Dosage: UNK
     Route: 065
  2. ENBREL [Suspect]
     Active Substance: ETANERCEPT
     Indication: RHEUMATOID ARTHRITIS
     Dosage: UNK
     Route: 065
  3. ENBREL [Suspect]
     Active Substance: ETANERCEPT
     Indication: PSORIASIS
     Dosage: 50 MG, ONCE A WEEK
     Route: 058
     Dates: start: 201611

REACTIONS (9)
  - Injection site erythema [Not Recovered/Not Resolved]
  - Hypersensitivity [Unknown]
  - Injection site pruritus [Unknown]
  - Accidental exposure to product [Unknown]
  - Injection site hypersensitivity [Unknown]
  - Exposure via skin contact [Unknown]
  - Injection site discolouration [Not Recovered/Not Resolved]
  - Device issue [Not Recovered/Not Resolved]
  - Injection site urticaria [Not Recovered/Not Resolved]

NARRATIVE: CASE EVENT DATE: 2016
